FAERS Safety Report 6332097-6 (Version None)
Quarter: 2009Q3

REPORT INFORMATION
  Report Type: 
  Country: None (occurrence: None)
  Receive Date: 20090827
  Receipt Date: 20090827
  Transmission Date: 20100115
  Serious: Yes (Life-Threatening, Hospitalization)
  Sender: FDA-Public Use
  Company Number: None

PATIENT
  Age: 47 Year
  Sex: Female
  Weight: 45 kg

DRUGS (15)
  1. SORAFENIB 200 MG BAYER [Suspect]
     Indication: PULMONARY ARTERIAL HYPERTENSION
     Dosage: 200 MG TID PO
     Route: 048
     Dates: start: 20080130, end: 20090813
  2. TREPROSTINOL 2.5 MG/CC UNITED THERAPEUTICS [Suspect]
     Indication: PULMONARY ARTERIAL HYPERTENSION
     Dosage: 144 NG/KG/MIN CONTINUOUS IV IV DRIP
     Route: 041
     Dates: start: 20081007, end: 20090825
  3. DIURIL [Concomitant]
  4. LASIX [Concomitant]
  5. IMODIUM [Concomitant]
  6. ZOFRAN [Concomitant]
  7. ALDACTONE [Concomitant]
  8. AMBIEN [Concomitant]
  9. TYLENOL (CAPLET) [Concomitant]
  10. MYLICON [Concomitant]
  11. VIAGRAN [Concomitant]
  12. AMIODARONE [Concomitant]
  13. ELAVIL [Concomitant]
  14. NEXIUM [Concomitant]
  15. IRON [Concomitant]

REACTIONS (2)
  - CATHETER RELATED INFECTION [None]
  - RIGHT VENTRICULAR FAILURE [None]
